FAERS Safety Report 6988069-1 (Version None)
Quarter: 2010Q3

REPORT INFORMATION
  Report Type: 
  Country: None (occurrence: None)
  Receive Date: 20100916
  Receipt Date: 20100910
  Transmission Date: 20110219
  Serious: Yes (Hospitalization)
  Sender: FDA-Public Use
  Company Number: A0881161A

PATIENT
  Age: 76 Year
  Sex: Female
  Weight: 60.3 kg

DRUGS (8)
  1. CARVEDILOL [Suspect]
  2. DIGOXIN [Suspect]
  3. ANASTROZOLE [Suspect]
     Indication: BREAST CANCER
     Dosage: 1MG PER DAY
     Route: 065
     Dates: start: 20051213, end: 20100816
  4. NORVASC [Suspect]
  5. CHANTIX [Suspect]
  6. IMDUR [Suspect]
  7. FORTEO [Suspect]
  8. SPIRIVA [Suspect]

REACTIONS (5)
  - CARDIAC FAILURE CONGESTIVE [None]
  - DYSPNOEA [None]
  - LEFT VENTRICULAR DYSFUNCTION [None]
  - MYOCARDIAL ISCHAEMIA [None]
  - WEIGHT INCREASED [None]
